FAERS Safety Report 12803970 (Version 1)
Quarter: 2016Q4

REPORT INFORMATION
  Report Type: Spontaneous
  Country: US (occurrence: US)
  Receive Date: 20161003
  Receipt Date: 20161003
  Transmission Date: 20170207
  Serious: Yes (Hospitalization, Other)
  Sender: FDA-Public Use
  Company Number: US-PFIZER INC-2016452533

PATIENT
  Age: 21 Year
  Sex: Female

DRUGS (2)
  1. SULFASALAZINE. [Suspect]
     Active Substance: SULFASALAZINE
     Indication: RHEUMATOID ARTHRITIS
     Dosage: 500 MG, 2X/DAY
     Dates: start: 20000728
  2. SULFASALAZINE. [Suspect]
     Active Substance: SULFASALAZINE
     Dosage: 1000 MG, 2X/DAY

REACTIONS (12)
  - Hepatitis cholestatic [Recovered/Resolved]
  - Eosinophilia [Recovered/Resolved]
  - Granuloma [Recovered/Resolved]
  - Hypersensitivity [Recovered/Resolved]
  - Toxicity to various agents [Recovered/Resolved]
  - Disseminated intravascular coagulation [Recovered/Resolved]
  - Bone marrow toxicity [Recovered/Resolved]
  - Idiosyncratic drug reaction [Recovered/Resolved]
  - Seizure [Recovered/Resolved]
  - Bone marrow granuloma [Recovered/Resolved]
  - Enteritis [Recovered/Resolved]
  - Neutropenia [Recovered/Resolved]
